FAERS Safety Report 19437072 (Version 1)
Quarter: 2021Q2

REPORT INFORMATION
  Report Type: Spontaneous
  Country: US (occurrence: US)
  Receive Date: 20210618
  Receipt Date: 20210618
  Transmission Date: 20210717
  Serious: No
  Sender: FDA-Public Use
  Company Number: US-009507513-2106USA004107

PATIENT
  Sex: Female

DRUGS (2)
  1. LENVATINIB MESYLATE [Suspect]
     Active Substance: LENVATINIB MESYLATE
     Indication: ENDOMETRIAL CANCER
     Dosage: 12 MILLIGRAM, DAILY
     Route: 048
     Dates: start: 20210304, end: 202105
  2. KEYTRUDA [Suspect]
     Active Substance: PEMBROLIZUMAB
     Indication: ENDOMETRIAL CANCER
     Dosage: UNK
     Dates: end: 2021

REACTIONS (2)
  - Ill-defined disorder [Unknown]
  - Diarrhoea [Recovered/Resolved]

NARRATIVE: CASE EVENT DATE: 2021
